FAERS Safety Report 9194580 (Version 1)
Quarter: 2013Q1

REPORT INFORMATION
  Report Type: Spontaneous
  Country: None (occurrence: US)
  Receive Date: 20130327
  Receipt Date: 20130327
  Transmission Date: 20140127
  Serious: No
  Sender: FDA-Public Use
  Company Number: US-ALLERGAN-1205848US

PATIENT
  Age: 47 Year
  Sex: Female

DRUGS (2)
  1. LATISSE 0.03% [Suspect]
     Indication: GROWTH OF EYELASHES
     Dosage: 2 GTT, QHS
     Route: 061
     Dates: start: 20120423, end: 20120424
  2. CLEARWAY [Concomitant]
     Indication: DRY EYE
     Dosage: UNK
     Route: 047

REACTIONS (10)
  - Visual acuity reduced [Not Recovered/Not Resolved]
  - Incorrect dose administered [Unknown]
  - Eye colour change [Not Recovered/Not Resolved]
  - Glare [Not Recovered/Not Resolved]
  - Drug administered at inappropriate site [Unknown]
  - Eye irritation [Unknown]
  - Eye irritation [Unknown]
  - Ocular hyperaemia [Unknown]
  - Eyelid oedema [Not Recovered/Not Resolved]
  - Lacrimation increased [Not Recovered/Not Resolved]
